FAERS Safety Report 4945669-8 (Version None)
Quarter: 2006Q1

REPORT INFORMATION
  Report Type: 
  Country: None (occurrence: None)
  Receive Date: 20060316
  Receipt Date: 20050902
  Transmission Date: 20060701
  Serious: Yes (Other)
  Sender: FDA-Public Use
  Company Number: PHEH2005US09845

PATIENT
  Age: 75 Year
  Sex: Male

DRUGS (5)
  1. ZOMETA [Suspect]
     Indication: PROSTATE CANCER METASTATIC
     Dosage: 3-4MG Q4WK
     Route: 042
     Dates: start: 20040621, end: 20050816
  2. TAXOTERE [Concomitant]
     Dosage: 60 MG, WEEKLY X 3; OFF 1
     Dates: start: 20040601
  3. STEROIDS NOS [Concomitant]
  4. DEXAMETHASONE TAB [Concomitant]
     Dosage: 10 MG, IVPB
     Route: 042
     Dates: start: 20040601
  5. PREDNISONE [Concomitant]
     Dosage: 5 MG, BID
     Dates: start: 20040601

REACTIONS (7)
  - ENANTHEMA [None]
  - JAW DISORDER [None]
  - LOCAL SWELLING [None]
  - PAIN [None]
  - PAIN IN JAW [None]
  - SOFT TISSUE INFECTION [None]
  - TOOTH DISORDER [None]
